FAERS Safety Report 4458033-5 (Version None)
Quarter: 2004Q3

REPORT INFORMATION
  Report Type: 
  Country: None (occurrence: None)
  Receive Date: 20040922
  Receipt Date: 20040902
  Transmission Date: 20050211
  Serious: Yes (Death)
  Sender: FDA-Public Use
  Company Number: A02200402642

PATIENT
  Age: 90 Year
  Sex: Female

DRUGS (11)
  1. PLAVIX [Suspect]
     Dosage: ORAL
     Route: 048
     Dates: start: 20040616, end: 20040712
  2. PRIMPERAN TAB [Suspect]
     Dates: start: 20040622, end: 20040709
  3. DOGMATIL - (SULPIRIDE) [Suspect]
     Dosage: 50 MG BID ORAL
     Route: 048
     Dates: start: 20040616, end: 20040708
  4. DITROPAN [Suspect]
     Dosage: ORAL
     Route: 048
     Dates: end: 20040709
  5. FERROUS FUMARATE [Suspect]
     Dosage: ORAL
     Route: 048
     Dates: start: 20040708, end: 20040710
  6. MIRTAZAPINE [Suspect]
     Dosage: ORAL
     Route: 048
     Dates: start: 20040708, end: 20040710
  7. DOXEPIN HCL [Suspect]
     Dates: start: 20040623, end: 20040709
  8. MOPRAL - (OMEPRAZOLE) [Suspect]
     Indication: GASTRITIS
     Dates: start: 20040622, end: 20040712
  9. CORVASAL - (MOLSIDOMINE) [Suspect]
  10. SMECTA ^IPSEN^ - (SMECTITE) - POWDER - 3 G [Suspect]
     Dosage: ORAL
     Route: 048
     Dates: start: 20040622, end: 20040704
  11. FLAGYL [Suspect]
     Dates: start: 20040628, end: 20040704

REACTIONS (3)
  - ASTHENIA [None]
  - HEPATIC FAILURE [None]
  - RENAL FAILURE ACUTE [None]
